FAERS Safety Report 5045854-3 (Version None)
Quarter: 2006Q3

REPORT INFORMATION
  Report Type: 
  Country: None (occurrence: None)
  Receive Date: 20060710
  Receipt Date: 20060629
  Transmission Date: 20061208
  Serious: Yes (Death, Hospitalization)
  Sender: FDA-Public Use
  Company Number: PHBS2006AT09711

PATIENT
  Sex: Male

DRUGS (1)
  1. AREDIA [Suspect]
     Indication: MULTIPLE MYELOMA

REACTIONS (5)
  - DEATH [None]
  - IMPAIRED HEALING [None]
  - OSTEOMYELITIS [None]
  - SURGERY [None]
  - TOOTH EXTRACTION [None]
